FAERS Safety Report 8428019-4 (Version None)
Quarter: 2012Q2

REPORT INFORMATION
  Report Type: 
  Country: None (occurrence: None)
  Receive Date: 20120611
  Receipt Date: 20120601
  Transmission Date: 20120825
  Serious: Yes (Other)
  Sender: FDA-Public Use
  Company Number: US-JNJFOC-20110704935

PATIENT
  Sex: Male

DRUGS (12)
  1. LEVAQUIN [Suspect]
     Indication: URINARY TRACT INFECTION
     Route: 048
  2. LEVAQUIN [Suspect]
     Indication: SINUSITIS
     Route: 048
  3. CIPROFLOXACIN [Suspect]
     Indication: PHARYNGITIS STREPTOCOCCAL
     Route: 065
  4. LEVAQUIN [Suspect]
     Indication: PHARYNGITIS STREPTOCOCCAL
     Route: 048
  5. NASONEX [Suspect]
     Indication: NASAL CONGESTION
     Route: 045
  6. LEVAQUIN [Suspect]
     Indication: STAPHYLOCOCCAL INFECTION
     Route: 048
  7. LEVAQUIN [Suspect]
     Indication: BRONCHITIS
     Route: 048
  8. LEVAQUIN [Suspect]
     Indication: PYREXIA
     Route: 048
  9. FLONASE [Suspect]
     Indication: PRODUCT USED FOR UNKNOWN INDICATION
     Route: 045
  10. DECADRON [Suspect]
     Indication: RHINITIS ALLERGIC
     Route: 065
  11. LEVAQUIN [Suspect]
     Indication: OROPHARYNGEAL PAIN
     Route: 048
  12. LEVAQUIN [Suspect]
     Indication: UPPER RESPIRATORY TRACT INFECTION
     Route: 048

REACTIONS (3)
  - ROTATOR CUFF SYNDROME [None]
  - MENISCUS LESION [None]
  - CARPAL TUNNEL SYNDROME [None]
